FAERS Safety Report 8096980-6 (Version None)
Quarter: 2012Q1

REPORT INFORMATION
  Report Type: 
  Country: None (occurrence: None)
  Receive Date: 20120129
  Receipt Date: 20111205
  Transmission Date: 20120608
  Serious: No
  Sender: FDA-Public Use
  Company Number: US-ABBOTT-11P-163-0880760-00

PATIENT
  Age: 29 Year
  Sex: Female

DRUGS (2)
  1. UNKNOWN BIRTH CONTROL PILL [Concomitant]
     Indication: PRODUCT USED FOR UNKNOWN INDICATION
     Dosage: DAILY
  2. HUMIRA [Suspect]
     Indication: PSORIASIS
     Dates: start: 20111001

REACTIONS (2)
  - SKIN EXFOLIATION [None]
  - STRESS [None]
